FAERS Safety Report 5300328-7 (Version None)
Quarter: 2007Q2

REPORT INFORMATION
  Report Type: 
  Country: None (occurrence: None)
  Receive Date: 20070410
  Receipt Date: 20070328
  Transmission Date: 20071010
  Serious: Yes (Hospitalization)
  Sender: FDA-Public Use
  Company Number: 2007RR-05855

PATIENT
  Sex: Female

DRUGS (8)
  1. METFORMIN HYDROCHLORIDE [Suspect]
     Dosage: 1000 MG, BID
  2. GLUCOPHAGE [Suspect]
     Dosage: 1000 MG, BID
  3. RIMONABANT(RIMONABANT) [Suspect]
     Dosage: 20 MG, QD, ORAL
     Route: 048
  4. ASPIRIN [Concomitant]
  5. ATENOLOL [Concomitant]
  6. COAPROVEL [Concomitant]
  7. LIPITOR [Concomitant]
  8. ROSIGLITAZONE [Concomitant]

REACTIONS (1)
  - RENAL FAILURE [None]
